FAERS Safety Report 5448757-5 (Version None)
Quarter: 2007Q3

REPORT INFORMATION
  Report Type: 
  Country: None (occurrence: None)
  Receive Date: 20070911
  Receipt Date: 20070907
  Transmission Date: 20080115
  Serious: Yes (Hospitalization)
  Sender: FDA-Public Use
  Company Number: B0486558A

PATIENT
  Age: 76 Year
  Sex: Male

DRUGS (3)
  1. AVANDIA [Suspect]
     Indication: DIABETES MELLITUS
     Dosage: 8MG PER DAY
     Route: 048
     Dates: start: 20051220, end: 20061201
  2. SOLOSA [Concomitant]
     Indication: DIABETES MELLITUS
     Route: 048
  3. LOSAPREX [Concomitant]
     Indication: DRUG USE FOR UNKNOWN INDICATION
     Route: 048

REACTIONS (1)
  - ACUTE MYOCARDIAL INFARCTION [None]
